FAERS Safety Report 5515229-9 (Version None)
Quarter: 2007Q4

REPORT INFORMATION
  Report Type: 
  Country: None (occurrence: None)
  Receive Date: 20071109
  Receipt Date: 20071101
  Transmission Date: 20080405
  Serious: Yes (Other)
  Sender: FDA-Public Use
  Company Number: CHPA2007US11676

PATIENT
  Age: 46 Year
  Sex: Female
  Weight: 52.2 kg

DRUGS (3)
  1. VAGISTAT-1 [Suspect]
     Indication: VULVOVAGINAL MYCOTIC INFECTION
     Dosage: 300 MG, ONCE/SINGLE, VAGINAL
     Route: 067
     Dates: start: 20071031, end: 20071031
  2. CIPROFLOXACIN [Concomitant]
  3. XANAX [Concomitant]

REACTIONS (1)
  - VAGINAL HAEMORRHAGE [None]
